FAERS Safety Report 4379416-8 (Version None)
Quarter: 2004Q2

REPORT INFORMATION
  Report Type: 
  Country: None (occurrence: None)
  Receive Date: 20040614
  Receipt Date: 20040608
  Transmission Date: 20050107
  Serious: Yes (Hospitalization)
  Sender: FDA-Public Use
  Company Number: US-SHR-04-023344

PATIENT
  Age: 46 Year
  Sex: Female

DRUGS (2)
  1. BETASERON (INTERFERON BETA- 1B)INJECTION, 250UG [Suspect]
     Indication: MULTIPLE SCLEROSIS
     Dosage: 8 MIU, EVERY 2D, SUBCUTANEOUS
     Route: 058
     Dates: start: 20011227
  2. EFFEXOR [Concomitant]

REACTIONS (1)
  - MYOCARDIAL INFARCTION [None]
